FAERS Safety Report 8075821-7 (Version None)
Quarter: 2012Q1

REPORT INFORMATION
  Report Type: 
  Country: None (occurrence: None)
  Receive Date: 20120127
  Receipt Date: 20120117
  Transmission Date: 20120608
  Serious: Yes (Hospitalization, Other)
  Sender: FDA-Public Use
  Company Number: ES-MPIJNJ-2012-00375

PATIENT

DRUGS (3)
  1. PREDNISONE TAB [Concomitant]
     Indication: MULTIPLE MYELOMA
  2. VELCADE [Suspect]
     Indication: MULTIPLE MYELOMA
     Dosage: UNK
     Route: 042
     Dates: end: 20111227
  3. MELPHALAN HYDROCHLORIDE [Concomitant]
     Indication: MULTIPLE MYELOMA

REACTIONS (2)
  - NEUROPATHY PERIPHERAL [None]
  - DEMENTIA [None]
